FAERS Safety Report 5928247-3 (Version None)
Quarter: 2008Q4

REPORT INFORMATION
  Report Type: 
  Country: None (occurrence: None)
  Receive Date: 20081022
  Receipt Date: 20081022
  Transmission Date: 20090506
  Serious: Yes (Other)
  Sender: FDA-Public Use
  Company Number: None

PATIENT

DRUGS (1)
  1. PHOSPHATIDYLOCHOLINE [Suspect]

REACTIONS (9)
  - ASTHENIA [None]
  - BACTERIAL INFECTION [None]
  - BLOOD URINE PRESENT [None]
  - BURNING SENSATION [None]
  - CYSTITIS [None]
  - DYSPHAGIA [None]
  - OEDEMA PERIPHERAL [None]
  - PROSTATE INFECTION [None]
  - VOMITING [None]
